FAERS Safety Report 7242329-8 (Version None)
Quarter: 2011Q1

REPORT INFORMATION
  Report Type: 
  Country: None (occurrence: None)
  Receive Date: 20110125
  Receipt Date: 20110113
  Transmission Date: 20110831
  Serious: Yes (Hospitalization)
  Sender: FDA-Public Use
  Company Number: US-BIOGENIDEC-2011BI001639

PATIENT
  Age: 42 Year
  Sex: Male

DRUGS (2)
  1. TYSABRI [Suspect]
     Indication: MULTIPLE SCLEROSIS
     Route: 042
     Dates: start: 20101103
  2. TYSABRI [Suspect]
     Route: 042
     Dates: start: 20071012, end: 20071207

REACTIONS (2)
  - KNEE ARTHROPLASTY [None]
  - MULTIPLE SCLEROSIS RELAPSE [None]
